FAERS Safety Report 16908369 (Version 1)
Quarter: 2019Q4

REPORT INFORMATION
  Report Type: Spontaneous
  Country: GB (occurrence: GB)
  Receive Date: 20191011
  Receipt Date: 20191011
  Transmission Date: 20200122
  Serious: Yes (Other)
  Sender: FDA-Public Use
  Company Number: GB-PFIZER INC-2019438468

PATIENT
  Age: 82 Year
  Sex: Male

DRUGS (10)
  1. FINASTERIDE. [Concomitant]
     Active Substance: FINASTERIDE
     Dosage: 5 MG, UNK
  2. METHOTREXATE SODIUM. [Suspect]
     Active Substance: METHOTREXATE SODIUM
     Dosage: UNK
     Route: 058
  3. AMLODIPINE BESILATE [Concomitant]
     Active Substance: AMLODIPINE BESYLATE
     Dosage: 5 MG, UNK
  4. CODEINE [Suspect]
     Active Substance: CODEINE
     Dosage: UNK (LOW DOSE)
  5. PARACETAMOL [Concomitant]
     Active Substance: ACETAMINOPHEN
     Indication: OSTEOARTHRITIS
     Dosage: 500 MG, UNK; 2-4 TIMES DAY
  6. CANDESARTAN. [Concomitant]
     Active Substance: CANDESARTAN
     Dosage: 4 MG, UNK
  7. ROSUVASTATIN. [Concomitant]
     Active Substance: ROSUVASTATIN
     Dosage: 5 MG, UNK
  8. CBD OIL [Concomitant]
     Active Substance: CANNABIDIOL\HERBALS
     Dosage: UNK
  9. TURMERIC CURCUMIN [Concomitant]
     Active Substance: HERBALS\TURMERIC
     Dosage: UNK
  10. LANSOPRAZOLE. [Concomitant]
     Active Substance: LANSOPRAZOLE
     Dosage: UNK

REACTIONS (5)
  - Loss of consciousness [Unknown]
  - Product use issue [Unknown]
  - Arthralgia [Unknown]
  - Off label use [Unknown]
  - Drug hypersensitivity [Unknown]
